FAERS Safety Report 8407439-8 (Version None)
Quarter: 2012Q2

REPORT INFORMATION
  Report Type: 
  Country: None (occurrence: None)
  Receive Date: 20120604
  Receipt Date: 20120522
  Transmission Date: 20120825
  Serious: Yes (Other)
  Sender: FDA-Public Use
  Company Number: US-SANOFI-AVENTIS-2012SA037339

PATIENT
  Age: 88 Year
  Sex: Male
  Weight: 90 kg

DRUGS (13)
  1. XARELTO [Suspect]
     Indication: DEEP VEIN THROMBOSIS
     Route: 048
     Dates: start: 20120217
  2. NIFEDIPINE [Concomitant]
     Dosage: DOSE:60 NOT APPLICABLE
  3. PLAVIX [Suspect]
     Indication: CORONARY ARTERY DISEASE
     Dates: start: 20110101
  4. PRILOSEC [Concomitant]
     Dates: start: 20080101
  5. TERAZOSIN HCL [Concomitant]
     Dosage: DOSE:2 NOT APPLICABLE
     Dates: start: 20060101
  6. PRILOSEC [Concomitant]
  7. ASPIRIN [Suspect]
     Indication: CORONARY ARTERY DISEASE
  8. FUROSEMIDE [Concomitant]
  9. BUDESONIDE/FORMOTEROL [Concomitant]
     Dates: start: 20080101
  10. ZOCOR [Concomitant]
     Dates: start: 20080101
  11. FINASTERIDE [Concomitant]
     Dates: start: 20080101
  12. LISINOPRIL [Concomitant]
     Dates: start: 20060101
  13. SINGULAIR [Concomitant]
     Dates: start: 20080101

REACTIONS (3)
  - EYE HAEMORRHAGE [None]
  - DEEP VEIN THROMBOSIS [None]
  - CONTUSION [None]
